FAERS Safety Report 7444687-8 (Version None)
Quarter: 2011Q2

REPORT INFORMATION
  Report Type: 
  Country: None (occurrence: None)
  Receive Date: 20110429
  Receipt Date: 20110420
  Transmission Date: 20111010
  Serious: Yes (Hospitalization, Other)
  Sender: FDA-Public Use
  Company Number: CH-NOVOPROD-325163

PATIENT
  Age: 71 Year
  Sex: Female
  Weight: 100 kg

DRUGS (9)
  1. ELTROXIN [Concomitant]
     Dosage: 0.2 MG, QD
     Route: 048
  2. DIAMICRON [Concomitant]
     Dosage: 2 X 30 MG
     Route: 048
  3. TORASEM [Concomitant]
     Dosage: 2 X 10 MG
     Route: 048
  4. CELLUVISC                          /00007002/ [Concomitant]
     Dosage: 1 DF(EYE DROPS ), QD
  5. METFORMIN HYDROCHLORIDE [Concomitant]
     Dosage: 3 X 850 MG
     Route: 048
  6. VICTOZA [Suspect]
     Indication: TYPE 2 DIABETES MELLITUS
     Dosage: 1.2 MG, QD
     Route: 058
     Dates: start: 20100211, end: 20110301
  7. PANTOZOL                           /01263202/ [Concomitant]
     Dosage: 40 MG, QD
     Route: 048
  8. DAFALGAN [Concomitant]
     Dosage: (IN RESERVE, MAX. 4 G / DAY)
     Route: 048
  9. PLAVIX [Concomitant]
     Dosage: 75 MG, QD
     Route: 048
     Dates: end: 20110301

REACTIONS (2)
  - ANAEMIA HAEMOLYTIC AUTOIMMUNE [None]
  - MYELODYSPLASTIC SYNDROME [None]
